FAERS Safety Report 8554329-6 (Version None)
Quarter: 2012Q3

REPORT INFORMATION
  Report Type: 
  Country: None (occurrence: None)
  Receive Date: 20120731
  Receipt Date: 20120718
  Transmission Date: 20120928
  Serious: No
  Sender: FDA-Public Use
  Company Number: US-009507513-1207USA008099

PATIENT

DRUGS (4)
  1. METFORMIN HYDROCHLORIDE [Concomitant]
  2. LISINOPRIL [Concomitant]
  3. HYDROCHLOROTHIAZIDE [Concomitant]
  4. PROVENTIL [Suspect]
     Indication: PNEUMONIA
     Dosage: 90 MICROGRAM, TID
     Dates: start: 20120706

REACTIONS (2)
  - DRUG INEFFECTIVE [None]
  - PRODUCT QUALITY ISSUE [None]
